FAERS Safety Report 17015665 (Version 2)
Quarter: 2019Q4

REPORT INFORMATION
  Report Type: Spontaneous
  Country: US (occurrence: US)
  Receive Date: 20191111
  Receipt Date: 20191223
  Transmission Date: 20200122
  Serious: No
  Sender: FDA-Public Use
  Company Number: US-GLAXOSMITHKLINE-US2019199355

PATIENT
  Sex: Female

DRUGS (1)
  1. VENTOLIN HFA [Suspect]
     Active Substance: ALBUTEROL SULFATE
     Indication: PRODUCT USED FOR UNKNOWN INDICATION
     Dosage: 2 PUFF(S),PRN
     Route: 055
     Dates: start: 201909

REACTIONS (4)
  - Drug ineffective [Unknown]
  - Product complaint [Unknown]
  - Product storage error [Unknown]
  - Wrong technique in product usage process [Unknown]
